FAERS Safety Report 6349718-4 (Version None)
Quarter: 2009Q3

REPORT INFORMATION
  Report Type: 
  Country: None (occurrence: None)
  Receive Date: 20090911
  Receipt Date: 20090902
  Transmission Date: 20100115
  Serious: Yes (Hospitalization)
  Sender: FDA-Public Use
  Company Number: FR-WATSON-2009-06407

PATIENT
  Age: 69 Year
  Sex: Male

DRUGS (6)
  1. MEPROBAMATE (WATSON LABORATORIES) [Suspect]
     Indication: SCHIZOPHRENIA
     Dosage: UNK
     Route: 065
  2. HALOPERIDOL (WATSON LABORATORIES) [Suspect]
     Indication: SCHIZOPHRENIA
     Route: 065
  3. LEVOMEPROMAZINE [Suspect]
     Indication: SCHIZOPHRENIA
     Dosage: UNK
     Route: 065
  4. PIPAMPERONE [Suspect]
     Indication: SCHIZOPHRENIA
  5. RISPERIDONE [Suspect]
     Indication: SCHIZOPHRENIA
  6. OLANZAPINE [Suspect]
     Indication: SCHIZOPHRENIA

REACTIONS (1)
  - HYPOTHERMIA [None]
